FAERS Safety Report 5523672-7 (Version None)
Quarter: 2007Q4

REPORT INFORMATION
  Report Type: 
  Country: None (occurrence: None)
  Receive Date: 20071121
  Receipt Date: 20071112
  Transmission Date: 20080405
  Serious: Yes (Hospitalization)
  Sender: FDA-Public Use
  Company Number: CH-ASTRAZENECA-2007PK02358

PATIENT
  Age: 70 Year
  Sex: Female

DRUGS (10)
  1. SEROQUEL [Suspect]
     Route: 048
     Dates: end: 20070717
  2. SEROQUEL [Suspect]
     Route: 048
     Dates: start: 20070718, end: 20070718
  3. SEROQUEL [Suspect]
     Route: 048
     Dates: start: 20070719, end: 20070722
  4. SEROQUEL [Suspect]
     Route: 048
  5. ZYPREXA [Concomitant]
     Dosage: }5 MG
     Route: 048
     Dates: end: 20070717
  6. ZYPREXA [Concomitant]
     Route: 048
     Dates: start: 20070718, end: 20070718
  7. TRITTICO [Concomitant]
     Route: 048
     Dates: end: 20070721
  8. LORAZEPAM [Concomitant]
     Route: 048
     Dates: end: 20070727
  9. ASPIRIN [Concomitant]
     Route: 048
     Dates: end: 20070728
  10. VALVERDE [Concomitant]
     Dosage: 2 TABLETS DAILY
     Route: 048

REACTIONS (1)
  - PLEUROTHOTONUS [None]
